FAERS Safety Report 21450672 (Version 1)
Quarter: 2022Q4

REPORT INFORMATION
  Report Type: Spontaneous
  Country: US (occurrence: None)
  Receive Date: 20221011
  Receipt Date: 20221011
  Transmission Date: 20230113
  Serious: Yes (Other)
  Sender: FDA-Public Use
  Company Number: None

PATIENT
  Age: 57 Year
  Sex: Female

DRUGS (1)
  1. HYDROXYCHLOROQUINE [Suspect]
     Active Substance: HYDROXYCHLOROQUINE
     Indication: Rheumatoid arthritis
     Dosage: 200MG BID ORAL
     Route: 048
     Dates: start: 202103, end: 202207

REACTIONS (3)
  - Vitreous detachment [None]
  - Cataract [None]
  - Visual impairment [None]

NARRATIVE: CASE EVENT DATE: 20220725
